FAERS Safety Report 7814692-8 (Version None)
Quarter: 2011Q4

REPORT INFORMATION
  Report Type: 
  Country: None (occurrence: None)
  Receive Date: 20111014
  Receipt Date: 20111011
  Transmission Date: 20120403
  Serious: Yes (Other)
  Sender: FDA-Public Use
  Company Number: US-PFIZER INC-2011243246

PATIENT
  Sex: Female
  Weight: 90.703 kg

DRUGS (2)
  1. EFFEXOR [Suspect]
     Indication: DEPRESSION
     Dosage: UNK, 1X/DAY
     Route: 048
     Dates: start: 20070101, end: 20070101
  2. TYLENOL-500 [Concomitant]
     Dosage: UNK, AS NEEDED

REACTIONS (3)
  - WITHDRAWAL SYNDROME [None]
  - DRUG INTOLERANCE [None]
  - LACERATION [None]
